FAERS Safety Report 18289384 (Version 3)
Quarter: 2020Q3

REPORT INFORMATION
  Report Type: Spontaneous
  Country: JM (occurrence: JM)
  Receive Date: 20200921
  Receipt Date: 20200923
  Transmission Date: 20201103
  Serious: Yes (Death, Life-Threatening, Other)
  Sender: FDA-Public Use
  Company Number: JM-PFIZER INC-2020357292

PATIENT
  Age: 33 Year
  Sex: Female

DRUGS (10)
  1. MORPHINE [Suspect]
     Active Substance: MORPHINE
     Dosage: UNK
  2. MIRTAZAPINE. [Suspect]
     Active Substance: MIRTAZAPINE
     Dosage: UNK
  3. LAMOTRIGINE. [Suspect]
     Active Substance: LAMOTRIGINE
     Dosage: UNK
  4. CLOZAPINE. [Suspect]
     Active Substance: CLOZAPINE
     Dosage: UNK
  5. GABAPENTIN. [Suspect]
     Active Substance: GABAPENTIN
     Dosage: UNK
  6. FLUBROMAZOLAM [Suspect]
     Active Substance: FLUBROMAZOLAM
     Dosage: UNK
  7. LORAZEPAM. [Concomitant]
     Active Substance: LORAZEPAM
     Dosage: UNK
  8. ETIZOLAM [Suspect]
     Active Substance: ETIZOLAM
     Dosage: UNK
  9. PROCYCLIDINE [Suspect]
     Active Substance: PROCYCLIDINE
     Dosage: UNK
  10. SALBUTAMOL [Concomitant]
     Active Substance: ALBUTEROL
     Dosage: UNK

REACTIONS (1)
  - Toxicity to various agents [Fatal]
